FAERS Safety Report 24204461 (Version 2)
Quarter: 2024Q3

REPORT INFORMATION
  Report Type: Spontaneous
  Country: US (occurrence: US)
  Receive Date: 20240813
  Receipt Date: 20240918
  Transmission Date: 20241017
  Serious: Yes (Hospitalization)
  Sender: CSL BEHRING
  Company Number: US-BEH-2024176709

PATIENT
  Age: 71 Year
  Sex: Male

DRUGS (8)
  1. IDELVION [Suspect]
     Active Substance: COAGULATION FACTOR IX RECOMBINANT HUMAN
     Indication: Factor IX deficiency
     Dosage: 5000 IU, PRN, STRENGTH (1000)
     Route: 042
     Dates: start: 201911
  2. IDELVION [Suspect]
     Active Substance: COAGULATION FACTOR IX RECOMBINANT HUMAN
     Indication: Factor IX deficiency
     Dosage: 5000 IU, PRN, STRENGTH (1000)
     Route: 042
     Dates: start: 201911
  3. IDELVION [Suspect]
     Active Substance: COAGULATION FACTOR IX RECOMBINANT HUMAN
     Dosage: 4800 IU, EVERY 10 DAYS AND AS NEEDED (PRN), STRENGTH (2000)
     Route: 042
     Dates: start: 201911
  4. IDELVION [Suspect]
     Active Substance: COAGULATION FACTOR IX RECOMBINANT HUMAN
     Dosage: 4800 IU, EVERY 10 DAYS AND AS NEEDED (PRN), STRENGTH (2000)
     Route: 042
     Dates: start: 201911
  5. IDELVION [Suspect]
     Active Substance: COAGULATION FACTOR IX RECOMBINANT HUMAN
     Indication: Factor IX deficiency
     Dosage: 5000 IU, PRN, STRENGTH (3500)
     Route: 042
     Dates: start: 201911
  6. IDELVION [Suspect]
     Active Substance: COAGULATION FACTOR IX RECOMBINANT HUMAN
     Indication: Factor IX deficiency
     Dosage: 5000 IU, PRN, STRENGTH (3500)
     Route: 042
     Dates: start: 201911
  7. IDELVION [Suspect]
     Active Substance: COAGULATION FACTOR IX RECOMBINANT HUMAN
     Dosage: 4800 IU, EVERY 10 DAYS AND AS NEEDED (PRN), STRENGTH (2000)
     Route: 042
     Dates: start: 201911
  8. IDELVION [Suspect]
     Active Substance: COAGULATION FACTOR IX RECOMBINANT HUMAN
     Dosage: 4800 IU, EVERY 10 DAYS AND AS NEEDED (PRN), STRENGTH (2000)
     Route: 042
     Dates: start: 201911

REACTIONS (4)
  - Hip arthroplasty [Unknown]
  - Haemarthrosis [Unknown]
  - Haemorrhage [Recovered/Resolved]
  - Tooth fracture [Unknown]

NARRATIVE: CASE EVENT DATE: 20240614
